FAERS Safety Report 19453294 (Version 3)
Quarter: 2021Q3

REPORT INFORMATION
  Report Type: Report from Study
  Country: US (occurrence: US)
  Receive Date: 20210623
  Receipt Date: 20210818
  Transmission Date: 20211014
  Serious: No
  Sender: FDA-Public Use
  Company Number: US-BIOVITRUM-2021US6411

PATIENT
  Age: 56 Year
  Sex: Female

DRUGS (1)
  1. KINERET [Suspect]
     Active Substance: ANAKINRA
     Indication: IDIOPATHIC URTICARIA
     Route: 058
     Dates: start: 20210617

REACTIONS (9)
  - Illness [Unknown]
  - Injection site mass [Unknown]
  - Product dose omission issue [Unknown]
  - Wrong technique in product usage process [Unknown]
  - Cough [Unknown]
  - Nasopharyngitis [Unknown]
  - Injection site erythema [Unknown]
  - Off label use [Recovered/Resolved]
  - Injection site urticaria [Unknown]

NARRATIVE: CASE EVENT DATE: 20210617
